FAERS Safety Report 8492088-6 (Version None)
Quarter: 2012Q3

REPORT INFORMATION
  Report Type: 
  Country: None (occurrence: None)
  Receive Date: 20120706
  Receipt Date: 20120628
  Transmission Date: 20120928
  Serious: Yes (Other)
  Sender: FDA-Public Use
  Company Number: US-ABBOTT-12P-163-0952091-00

PATIENT
  Sex: Female
  Weight: 54.48 kg

DRUGS (6)
  1. HUMIRA [Suspect]
     Indication: ANKYLOSING SPONDYLITIS
     Dates: start: 20110901, end: 20120501
  2. NORCO [Concomitant]
     Indication: PAIN
  3. METHOTREXATE [Concomitant]
     Indication: ANKYLOSING SPONDYLITIS
  4. FOLIC ACID [Concomitant]
     Indication: ANKYLOSING SPONDYLITIS
  5. CELEBREX [Concomitant]
     Indication: OSTEOARTHRITIS
  6. DONATOL [Concomitant]
     Indication: IRRITABLE BOWEL SYNDROME

REACTIONS (1)
  - CARPAL TUNNEL SYNDROME [None]
